FAERS Safety Report 17606745 (Version 3)
Quarter: 2020Q2

REPORT INFORMATION
  Report Type: Spontaneous
  Country: JP (occurrence: JP)
  Receive Date: 20200331
  Receipt Date: 20200423
  Transmission Date: 20200713
  Serious: No
  Sender: FDA-Public Use
  Company Number: JP-ALLERGAN-2013813US

PATIENT
  Sex: Male

DRUGS (7)
  1. ALPHAGAN P [Suspect]
     Active Substance: BRIMONIDINE TARTRATE
     Dosage: UNK UNK, BID
     Route: 047
     Dates: start: 2013, end: 20190801
  2. XALACOM COMBINATION [Concomitant]
     Dosage: UNK
     Dates: start: 20150402, end: 201509
  3. MIKELAN LA [Concomitant]
     Active Substance: CARTEOLOL HYDROCHLORIDE
     Dosage: UNK
     Dates: end: 20150402
  4. ALPHAGAN P [Suspect]
     Active Substance: BRIMONIDINE TARTRATE
     Indication: OPEN ANGLE GLAUCOMA
     Dosage: UNK
  5. ALPHAGAN P [Suspect]
     Active Substance: BRIMONIDINE TARTRATE
     Dosage: UNK UNK, BID
     Route: 047
     Dates: start: 20190801, end: 20190808
  6. XALATAN [Concomitant]
     Active Substance: LATANOPROST
     Dosage: UNK
     Dates: start: 20151001, end: 201908
  7. XALATAN [Concomitant]
     Active Substance: LATANOPROST
     Dosage: UNK
     Dates: end: 20150402

REACTIONS (1)
  - Keratitis [Recovered/Resolved]
